FAERS Safety Report 19954705 (Version 1)
Quarter: 2021Q4

REPORT INFORMATION
  Report Type: Spontaneous
  Country: IN (occurrence: IN)
  Receive Date: 20211014
  Receipt Date: 20211014
  Transmission Date: 20220303
  Serious: Yes (Hospitalization, Other)
  Sender: FDA-Public Use
  Company Number: IN-TORRENT-00002919

PATIENT
  Age: 29 Year
  Sex: Female

DRUGS (3)
  1. OLANZAPINE [Suspect]
     Active Substance: OLANZAPINE
     Indication: Mania
     Dosage: 5 MG
  2. LORAZEPAM [Suspect]
     Active Substance: LORAZEPAM
     Indication: Mania
  3. VALPROATE SODIUM [Suspect]
     Active Substance: VALPROATE SODIUM
     Indication: Mania

REACTIONS (6)
  - Condition aggravated [Unknown]
  - Confusional state [Unknown]
  - Seizure [Recovered/Resolved]
  - Memory impairment [Unknown]
  - Abnormal behaviour [Unknown]
  - Disorientation [Unknown]
